FAERS Safety Report 13267564 (Version 1)
Quarter: 2017Q1

REPORT INFORMATION
  Report Type: Spontaneous
  Country: US (occurrence: US)
  Receive Date: 20170224
  Receipt Date: 20170224
  Transmission Date: 20170428
  Serious: No
  Sender: FDA-Public Use
  Company Number: US-PFIZER INC-2017074868

PATIENT
  Age: 52 Year
  Sex: Male
  Weight: 78.93 kg

DRUGS (1)
  1. VIAGRA [Suspect]
     Active Substance: SILDENAFIL CITRATE
     Indication: CARDIOVASCULAR DISORDER
     Dosage: 100MG TABLET, GETS 30 EVERY 90 DAYS, TRIES TO ONLY TAKE IT ONCE A WEEK

REACTIONS (4)
  - Pre-existing condition improved [Unknown]
  - Therapeutic response unexpected [Unknown]
  - Drug interaction [Unknown]
  - Product use issue [Unknown]
